FAERS Safety Report 16031404 (Version 2)
Quarter: 2019Q3

REPORT INFORMATION
  Report Type: Spontaneous
  Country: US (occurrence: US)
  Receive Date: 20190304
  Receipt Date: 20190830
  Transmission Date: 20191004
  Serious: Yes (Other)
  Sender: FDA-Public Use
  Company Number: US-MYLANLABS-2019M1013249

PATIENT
  Age: 62 Year
  Sex: Female
  Weight: 74.8 kg

DRUGS (3)
  1. ESTRADIOL. [Suspect]
     Active Substance: ESTRADIOL
     Indication: PRODUCT USED FOR UNKNOWN INDICATION
     Dosage: 1 PUMP/DAY FOR 3 OR 4 WEEKS
     Dates: start: 201811
  2. NORMAL SALINE [Concomitant]
     Active Substance: SODIUM CHLORIDE
     Dosage: UNK
  3. MULTI VITAMIN                      /08408501/ [Concomitant]
     Active Substance: VITAMINS
     Dosage: UNK

REACTIONS (1)
  - Thrombophlebitis superficial [Unknown]

NARRATIVE: CASE EVENT DATE: 20181230
